FAERS Safety Report 4361387-1 (Version None)
Quarter: 2004Q2

REPORT INFORMATION
  Report Type: 
  Country: None (occurrence: None)
  Receive Date: 20040517
  Receipt Date: 20040504
  Transmission Date: 20050107
  Serious: Yes (Other)
  Sender: FDA-Public Use
  Company Number: 2004029801

PATIENT
  Age: 17 Year
  Sex: Male

DRUGS (2)
  1. ATARAX [Suspect]
     Indication: ILL-DEFINED DISORDER
     Dosage: 25 MG (DAILY), ORAL
     Route: 048
     Dates: start: 20040220, end: 20040220
  2. DEXTROMETHORPHAN HYDROBROMIDE [Suspect]
     Indication: ILL-DEFINED DISORDER
     Dosage: ORAL
     Route: 048
     Dates: start: 20040220, end: 20040227

REACTIONS (2)
  - DYSKINESIA [None]
  - PYREXIA [None]
